FAERS Safety Report 7860352-7 (Version None)
Quarter: 2011Q4

REPORT INFORMATION
  Report Type: 
  Country: None (occurrence: None)
  Receive Date: 20111027
  Receipt Date: 20111012
  Transmission Date: 20120403
  Serious: Yes (Other)
  Sender: FDA-Public Use
  Company Number: PHHY2011ZA80692

PATIENT
  Age: 63 Year

DRUGS (3)
  1. SANDOSTATIN LAR [Suspect]
     Dosage: 10 MG, QMO
  2. RHINOCORT (BECLOMETASONE DIPROPIONATE) [Concomitant]
     Route: 061
  3. ATORVASTATIN CALCIUM [Concomitant]
     Dosage: 10 MG, UNK

REACTIONS (7)
  - SERONEGATIVE ARTHRITIS [None]
  - MUSCULOSKELETAL STIFFNESS [None]
  - FEELING HOT [None]
  - FUNGAL PARONYCHIA [None]
  - CHILLBLAINS [None]
  - JOINT SWELLING [None]
  - ARTHRALGIA [None]
